FAERS Safety Report 11454020 (Version 2)
Quarter: 2015Q3

REPORT INFORMATION
  Report Type: Spontaneous
  Country: US (occurrence: US)
  Receive Date: 20150903
  Receipt Date: 20150908
  Transmission Date: 20151125
  Serious: Yes (Other)
  Sender: FDA-Public Use
  Company Number: US-BAYER-2015-414029

PATIENT
  Age: 40 Year
  Sex: Female

DRUGS (1)
  1. MIRENA [Suspect]
     Active Substance: LEVONORGESTREL
     Indication: CONTRACEPTION
     Dosage: 20 MCG/24HR, CONT
     Route: 015
     Dates: start: 20150621, end: 20150826

REACTIONS (4)
  - Device expulsion [Recovered/Resolved]
  - Abdominal pain lower [None]
  - Pain [None]
  - Genital haemorrhage [None]

NARRATIVE: CASE EVENT DATE: 2015
